FAERS Safety Report 5193764-3 (Version None)
Quarter: 2006Q4

REPORT INFORMATION
  Report Type: 
  Country: None (occurrence: None)
  Receive Date: 20061228
  Receipt Date: 20061220
  Transmission Date: 20070319
  Serious: Yes (Hospitalization)
  Sender: FDA-Public Use
  Company Number: FR-GLAXOSMITHKLINE-B0451386A

PATIENT
  Age: 83 Year
  Sex: Female
  Weight: 75 kg

DRUGS (1)
  1. VALACYCLOVIR [Suspect]
     Indication: HERPES VIRUS INFECTION
     Route: 048
     Dates: start: 20060929, end: 20060930

REACTIONS (6)
  - BLADDER DISORDER [None]
  - CONFUSIONAL STATE [None]
  - DISORIENTATION [None]
  - HYPERCALCAEMIA [None]
  - MOOD SWINGS [None]
  - OVERDOSE [None]
